FAERS Safety Report 10052930 (Version 1)
Quarter: 2014Q2

REPORT INFORMATION
  Report Type: Report from Study
  Country: CA (occurrence: CA)
  Receive Date: 20140402
  Receipt Date: 20140402
  Transmission Date: 20141212
  Serious: Yes (Death, Other)
  Sender: FDA-Public Use
  Company Number: CA-BRISTOL-MYERS SQUIBB COMPANY-20555587

PATIENT
  Age: 79 Year
  Sex: Female

DRUGS (7)
  1. ORENCIA [Suspect]
     Indication: RHEUMATOID ARTHRITIS
     Dates: start: 20110812
  2. GABAPENTIN [Concomitant]
  3. TYLENOL WITH CODEINE [Concomitant]
  4. CAPTOPRIL [Concomitant]
  5. HYDROCHLOROTHIAZIDE [Concomitant]
  6. NEXIUM [Concomitant]
  7. VITAMINS [Concomitant]

REACTIONS (4)
  - Death [Fatal]
  - Chest pain [Unknown]
  - Back pain [Unknown]
  - Arthropathy [Unknown]
